FAERS Safety Report 22118116 (Version 1)
Quarter: 2023Q1

REPORT INFORMATION
  Report Type: Spontaneous
  Country: US (occurrence: US)
  Receive Date: 20230321
  Receipt Date: 20230321
  Transmission Date: 20230418
  Serious: Yes (Other)
  Sender: FDA-Public Use
  Company Number: US-NOVOPROD-1038096

PATIENT
  Sex: Female

DRUGS (2)
  1. LEVEMIR [Suspect]
     Active Substance: INSULIN DETEMIR
     Indication: Type 1 diabetes mellitus
     Dosage: UNK
     Route: 058
  2. NOVOLOG [Suspect]
     Active Substance: INSULIN ASPART
     Indication: Type 1 diabetes mellitus
     Dosage: BETWEEN 20 AND 30 UNITS A DAY
     Route: 058
     Dates: start: 20150714

REACTIONS (5)
  - Head injury [Unknown]
  - Accident [Unknown]
  - Deafness [Unknown]
  - Hypoglycaemia [Unknown]
  - Bite [Unknown]
